FAERS Safety Report 18728723 (Version 6)
Quarter: 2025Q2

REPORT INFORMATION
  Report Type: Spontaneous
  Country: CZ (occurrence: CZ)
  Receive Date: 20210112
  Receipt Date: 20250604
  Transmission Date: 20250717
  Serious: Yes (Other)
  Sender: AUROBINDO
  Company Number: CZ-TEVA-2020-CZ-1859071

PATIENT
  Age: 41 Year
  Sex: Female

DRUGS (3)
  1. METOPROLOL [Suspect]
     Active Substance: METOPROLOL
     Indication: Migraine
     Dosage: 50 MILLIGRAM, ONCE A DAY
     Route: 048
     Dates: start: 201601, end: 2016
  2. TOPIRAMATE [Suspect]
     Active Substance: TOPIRAMATE
     Indication: Migraine
     Dosage: 25 MILLIGRAM, TWO TIMES A DAY
     Route: 065
     Dates: start: 2016, end: 2016
  3. TOPIRAMATE [Suspect]
     Active Substance: TOPIRAMATE
     Indication: Migraine without aura
     Route: 065
     Dates: start: 201808, end: 201809

REACTIONS (13)
  - Syncope [Unknown]
  - Anxiety [Unknown]
  - Blunted affect [Unknown]
  - Presyncope [Recovered/Resolved]
  - Confusional state [Recovered/Resolved]
  - Sedation [Recovered/Resolved]
  - Drug titration error [Unknown]
  - Underdose [Unknown]
  - Medication error [Unknown]
  - Drug effect less than expected [Unknown]
  - Treatment noncompliance [Unknown]
  - Therapeutic product effect incomplete [Unknown]
  - Product use in unapproved indication [Unknown]

NARRATIVE: CASE EVENT DATE: 20160101
